FAERS Safety Report 17157938 (Version 1)
Quarter: 2019Q4

REPORT INFORMATION
  Report Type: Spontaneous
  Country: US (occurrence: US)
  Receive Date: 20191216
  Receipt Date: 20191216
  Transmission Date: 20200122
  Serious: Yes (Other)
  Sender: FDA-Public Use
  Company Number: NVSC2019US008492

PATIENT
  Age: 79 Year
  Sex: Male
  Weight: 80.2 kg

DRUGS (2)
  1. ENTRESTO [Suspect]
     Active Substance: SACUBITRIL\VALSARTAN
     Indication: CHRONIC LEFT VENTRICULAR FAILURE
     Dosage: 100 MG, BID
     Route: 048
     Dates: start: 20190514, end: 20191009
  2. ENTRESTO [Suspect]
     Active Substance: SACUBITRIL\VALSARTAN
     Dosage: UNK UNK, BID
     Route: 048
     Dates: start: 20191104

REACTIONS (8)
  - Paraesthesia oral [Recovering/Resolving]
  - Lip pain [Not Recovered/Not Resolved]
  - Angioedema [Recovering/Resolving]
  - Swollen tongue [Recovering/Resolving]
  - Hypoaesthesia oral [Recovering/Resolving]
  - Glossodynia [Not Recovered/Not Resolved]
  - Lip swelling [Recovering/Resolving]
  - Periorbital swelling [Recovering/Resolving]

NARRATIVE: CASE EVENT DATE: 20190923
